FAERS Safety Report 6484202-9 (Version None)
Quarter: 2009Q4

REPORT INFORMATION
  Report Type: 
  Country: None (occurrence: None)
  Receive Date: 20091209
  Receipt Date: 20091130
  Transmission Date: 20100525
  Serious: Yes (Other)
  Sender: FDA-Public Use
  Company Number: A0796696A

PATIENT
  Sex: Male

DRUGS (5)
  1. ADVAIR DISKUS 100/50 [Suspect]
     Indication: ASTHMA
     Dosage: 1PUFF TWICE PER DAY
     Route: 055
     Dates: start: 20040101
  2. ATROVENT [Concomitant]
     Indication: DRUG USE FOR UNKNOWN INDICATION
     Dosage: 2PUFF FOUR TIMES PER DAY
     Route: 055
     Dates: start: 20081222
  3. CELEBREX [Concomitant]
     Indication: DRUG USE FOR UNKNOWN INDICATION
     Dosage: 200MG PER DAY
     Route: 065
     Dates: start: 20081222
  4. DILTIAZEM CD [Concomitant]
     Indication: DRUG USE FOR UNKNOWN INDICATION
     Dosage: 240MG PER DAY
     Route: 065
     Dates: start: 20090603
  5. RABEPRAZOLE [Concomitant]
     Indication: DRUG USE FOR UNKNOWN INDICATION
     Dosage: 20MG PER DAY
     Dates: start: 20090603

REACTIONS (3)
  - ASTHMA [None]
  - DRUG INEFFECTIVE [None]
  - PRODUCT QUALITY ISSUE [None]
